FAERS Safety Report 22618074 (Version 1)
Quarter: 2023Q2

REPORT INFORMATION
  Report Type: Other
  Country: US (occurrence: None)
  Receive Date: 20230620
  Receipt Date: 20230620
  Transmission Date: 20230721
  Serious: Yes (Hospitalization)
  Sender: FDA-Public Use
  Company Number: US-ROCHE-3365503

PATIENT
  Age: 52 Year
  Sex: Male
  Weight: 91.708 kg

DRUGS (6)
  1. OCREVUS [Suspect]
     Active Substance: OCRELIZUMAB
     Indication: Secondary progressive multiple sclerosis
     Dosage: ONGOING YES
     Route: 042
     Dates: start: 2018
  2. VITAMIN D2 [Concomitant]
     Active Substance: ERGOCALCIFEROL
     Indication: Vitamin D decreased
     Route: 048
  3. CLARITIN [Concomitant]
     Active Substance: LORATADINE
     Indication: Hypersensitivity
     Route: 048
  4. FLONASE [Concomitant]
     Active Substance: FLUTICASONE PROPIONATE
     Dosage: AS NEEDED, 1 SPRAY IN EACH NOSTRIL ;ONGOING: YES
  5. OXYCODONE [Concomitant]
     Active Substance: OXYCODONE
     Indication: Pain
     Route: 048
  6. BOTOX [Concomitant]
     Active Substance: ONABOTULINUMTOXINA
     Indication: Muscle spasticity
     Dates: start: 2018

REACTIONS (5)
  - Cerebrovascular accident [Recovered/Resolved]
  - COVID-19 [Recovered/Resolved]
  - Weight increased [Recovered/Resolved]
  - Weight decreased [Not Recovered/Not Resolved]
  - Multiple sclerosis [Recovering/Resolving]

NARRATIVE: CASE EVENT DATE: 20200101
